FAERS Safety Report 4537434-0 (Version None)
Quarter: 2004Q4

REPORT INFORMATION
  Report Type: 
  Country: None (occurrence: None)
  Receive Date: 20041221
  Receipt Date: 20041210
  Transmission Date: 20050328
  Serious: Yes (Death)
  Sender: FDA-Public Use
  Company Number: CIP04002664

PATIENT
  Age: 33 Year
  Sex: Male
  Weight: 55 kg

DRUGS (5)
  1. DANTRIUM [Suspect]
     Indication: MYOCLONUS
     Dosage: 50 MG, IV NOS
     Route: 042
     Dates: start: 20041210, end: 20041210
  2. DILAUDID [Concomitant]
  3. METHADONE HCL [Concomitant]
  4. MORPHINE SULFATE [Concomitant]
  5. ATIVAN [Concomitant]

REACTIONS (2)
  - COMA [None]
  - CONVULSION [None]
